FAERS Safety Report 16849677 (Version 1)
Quarter: 2019Q3

REPORT INFORMATION
  Report Type: Spontaneous
  Country: ES (occurrence: ES)
  Receive Date: 20190925
  Receipt Date: 20190925
  Transmission Date: 20191005
  Serious: Yes (Other)
  Sender: FDA-Public Use
  Company Number: ES-GLAXOSMITHKLINE-ES2019171316

PATIENT
  Age: 3 Year
  Sex: Male

DRUGS (6)
  1. FLIXOTIDE [Suspect]
     Active Substance: FLUTICASONE PROPIONATE
     Indication: CHILDHOOD ASTHMA
     Dosage: 1 INHALATION EVERY 12 HOURS
     Route: 055
     Dates: start: 20181219, end: 20181221
  2. FLIXOTIDE [Suspect]
     Active Substance: FLUTICASONE PROPIONATE
     Dosage: UNK
     Route: 065
  3. PULMICTAN [Suspect]
     Active Substance: BUDESONIDE
     Indication: CHILDHOOD ASTHMA
     Dosage: 2 BEATS EVERY 12 HOURS
     Route: 055
     Dates: start: 20181122, end: 20181125
  4. BUDESONIDA ALDO-UNION SUSPENSION PARA INHALACION POR NEBULIZADOR [Suspect]
     Active Substance: BUDESONIDE
     Indication: CHILDHOOD ASTHMA
     Dosage: 2 BEATS EVERY 12 HOURS
     Route: 055
     Dates: start: 20181115, end: 20181118
  5. PULMICTAN [Suspect]
     Active Substance: BUDESONIDE
     Dosage: UNK
     Route: 065
  6. BUDESONIDA ALDO-UNION SUSPENSION PARA INHALACION POR NEBULIZADOR [Suspect]
     Active Substance: BUDESONIDE
     Dosage: UNK
     Route: 065

REACTIONS (1)
  - Glossitis [Recovered/Resolved]

NARRATIVE: CASE EVENT DATE: 20181115
